FAERS Safety Report 4934050-3 (Version None)
Quarter: 2006Q1

REPORT INFORMATION
  Report Type: 
  Country: None (occurrence: None)
  Receive Date: 20060303
  Receipt Date: 20060222
  Transmission Date: 20060701
  Serious: Yes (Other)
  Sender: FDA-Public Use
  Company Number: MC200600171

PATIENT
  Sex: Female
  Weight: 13.2 kg

DRUGS (1)
  1. ANGIOMAX [Suspect]
     Indication: CORONARY ARTERY SURGERY
     Dosage: 4.5 ML, BOLUS, IV BOLUS : 10.5 ML, HR, INTRAVENOUS
     Route: 040
     Dates: start: 20051205, end: 20051205

REACTIONS (2)
  - COAGULATION TIME PROLONGED [None]
  - OVERDOSE [None]
